FAERS Safety Report 11769897 (Version 2)
Quarter: 2016Q1

REPORT INFORMATION
  Report Type: Spontaneous
  Country: US (occurrence: US)
  Receive Date: 20151123
  Receipt Date: 20160129
  Transmission Date: 20160525
  Serious: No
  Sender: FDA-Public Use
  Company Number: US-AKRIMAX-TIR-2015-0300

PATIENT
  Age: 63 Year
  Sex: Female
  Weight: 86.26 kg

DRUGS (3)
  1. COREG [Concomitant]
     Active Substance: CARVEDILOL
     Indication: BLOOD PRESSURE MEASUREMENT
     Dosage: FOR MANY YEARS
  2. LIPITOR [Concomitant]
     Active Substance: ATORVASTATIN CALCIUM
     Indication: BLOOD CHOLESTEROL
     Dosage: FOR MANY YEARS
  3. TIROSINT [Suspect]
     Active Substance: LEVOTHYROXINE SODIUM
     Indication: HYPOTHYROIDISM
     Dosage: ONCE DAILY
     Route: 048
     Dates: start: 201507

REACTIONS (7)
  - Myalgia [None]
  - Chest discomfort [None]
  - Muscle spasms [None]
  - Pain in extremity [None]
  - Back pain [None]
  - Muscle spasms [None]
  - Chest pain [None]

NARRATIVE: CASE EVENT DATE: 2015
